FAERS Safety Report 10338778 (Version 1)
Quarter: 2014Q3

REPORT INFORMATION
  Report Type: Spontaneous
  Country: US (occurrence: None)
  Receive Date: 20140723
  Receipt Date: 20140723
  Transmission Date: 20150326
  Serious: Yes (Hospitalization)
  Sender: FDA-Public Use
  Company Number: None

PATIENT
  Age: 62 Year
  Sex: Male
  Weight: 135 kg

DRUGS (1)
  1. ACETAMINOPHEN AND CODEINE [Suspect]
     Active Substance: ACETAMINOPHEN\CODEINE PHOSPHATE
     Dosage: 1 TAB, BID, PO
     Route: 048
     Dates: start: 20031203

REACTIONS (3)
  - Overdose [None]
  - Confusional state [None]
  - Hypotension [None]

NARRATIVE: CASE EVENT DATE: 20140714
